FAERS Safety Report 16180222 (Version 1)
Quarter: 2019Q2

REPORT INFORMATION
  Report Type: Spontaneous
  Country: FR (occurrence: FR)
  Receive Date: 20190410
  Receipt Date: 20190410
  Transmission Date: 20190711
  Serious: Yes (Congenital Anomaly)
  Sender: FDA-Public Use
  Company Number: FR-BAUSCH-BL-2019-010782

PATIENT
  Sex: Male

DRUGS (6)
  1. BEAGYNE [Suspect]
     Active Substance: FLUCONAZOLE
     Indication: CANDIDA INFECTION
     Route: 064
     Dates: start: 200610
  2. FASIGYNE (TINIDAZOLE) [Suspect]
     Active Substance: TINIDAZOLE
     Indication: VAGINAL INFECTION
     Route: 064
     Dates: start: 200610
  3. FLAGYL [Suspect]
     Active Substance: METRONIDAZOLE\METRONIDAZOLE HYDROCHLORIDE
     Indication: BACTERIAL INFECTION
     Route: 064
     Dates: start: 200609
  4. AZANTAC [Suspect]
     Active Substance: RANITIDINE HYDROCHLORIDE
     Indication: GASTROOESOPHAGEAL REFLUX DISEASE
     Route: 064
     Dates: start: 200611
  5. MONAZOL [Suspect]
     Active Substance: SERTACONAZOLE NITRATE
     Indication: FUNGAL INFECTION
     Route: 064
     Dates: start: 200608, end: 20061120
  6. TARDYFERON B9 (FERROUS SULFATE\FOLIC ACID) [Suspect]
     Active Substance: FERROUS SULFATE\FOLIC ACID
     Indication: ANAEMIA
     Route: 064
     Dates: start: 200611

REACTIONS (4)
  - Caesarean section [None]
  - Maternal drugs affecting foetus [None]
  - Facial paralysis [Not Recovered/Not Resolved]
  - Macrosomia [None]

NARRATIVE: CASE EVENT DATE: 20061129
